FAERS Safety Report 14617258 (Version 1)
Quarter: 2018Q1

REPORT INFORMATION
  Report Type: Spontaneous
  Country: CN (occurrence: CN)
  Receive Date: 20180309
  Receipt Date: 20180309
  Transmission Date: 20180509
  Serious: Yes (Hospitalization)
  Sender: FDA-Public Use
  Company Number: CN-JNJFOC-20180239860

PATIENT
  Age: 50 Year
  Sex: Male
  Weight: 83 kg

DRUGS (8)
  1. TYLENOL [Suspect]
     Active Substance: ACETAMINOPHEN
     Indication: PYREXIA
     Route: 048
     Dates: start: 20171224, end: 20171224
  2. CEFDINIR. [Suspect]
     Active Substance: CEFDINIR
     Indication: RESPIRATORY TRACT INFECTION
     Route: 048
     Dates: start: 20171224, end: 20171224
  3. TYLENOL [Suspect]
     Active Substance: ACETAMINOPHEN
     Route: 048
  4. CRAVIT [Suspect]
     Active Substance: LEVOFLOXACIN
     Indication: RESPIRATORY TRACT INFECTION
     Route: 048
     Dates: start: 20171223, end: 20171223
  5. ASPARTIC ACID [Concomitant]
     Active Substance: ASPARTIC ACID
     Indication: DIABETES MELLITUS
     Route: 058
     Dates: start: 20171218, end: 20171224
  6. CEFTRIAXONE SODIUM. [Suspect]
     Active Substance: CEFTRIAXONE SODIUM
     Indication: RESPIRATORY TRACT INFECTION
     Route: 042
     Dates: start: 20171224, end: 20171224
  7. ACARBOSE. [Concomitant]
     Active Substance: ACARBOSE
     Indication: DIABETES MELLITUS
     Route: 065
     Dates: start: 20171218, end: 20171224
  8. IRBESARTAN. [Concomitant]
     Active Substance: IRBESARTAN
     Indication: HYPERTENSION
     Route: 065
     Dates: start: 20171218, end: 20171224

REACTIONS (1)
  - Toxic epidermal necrolysis [Recovering/Resolving]

NARRATIVE: CASE EVENT DATE: 20171225
